FAERS Safety Report 18595925 (Version 1)
Quarter: 2020Q4

REPORT INFORMATION
  Report Type: Spontaneous
  Country: US (occurrence: US)
  Receive Date: 20201209
  Receipt Date: 20201209
  Transmission Date: 20210114
  Serious: No
  Sender: FDA-Public Use
  Company Number: US-SUPERNUS PHARMACEUTICALS, INC.-2020SUP00110

PATIENT
  Age: 59 Year
  Sex: Female
  Weight: 52.15 kg

DRUGS (3)
  1. TROKENDI XR [Suspect]
     Active Substance: TOPIRAMATE
     Indication: MIGRAINE
     Dosage: 25 MG ^SAMPLES^, 1X/DAY AROUND LUNCH TIME OR SLIGHTLY AFTER
     Route: 048
     Dates: start: 20200508, end: 20200514
  2. TROKENDI XR [Suspect]
     Active Substance: TOPIRAMATE
     Dosage: 25 MG, 1X/DAY AROUND LUNCH TIME OR SLIGHTLY AFTER
     Route: 048
     Dates: start: 20200517
  3. TROKENDI XR [Suspect]
     Active Substance: TOPIRAMATE
     Indication: MIGRAINE
     Dosage: 50 MG, 1X/DAY AROUNF LUNCH TIME OR SLIGHTLY AFTER
     Route: 048
     Dates: start: 20200515, end: 20200516

REACTIONS (8)
  - Drug ineffective [Not Recovered/Not Resolved]
  - Confusional state [Recovered/Resolved]
  - Thinking abnormal [Recovered/Resolved]
  - Dizziness [Recovered/Resolved]
  - Hypersensitivity [Not Recovered/Not Resolved]
  - Heart rate decreased [Recovered/Resolved]
  - Blood pressure decreased [Recovered/Resolved]
  - Dysarthria [Recovered/Resolved]

NARRATIVE: CASE EVENT DATE: 202005
